FAERS Safety Report 5580696-1 (Version None)
Quarter: 2008Q1

REPORT INFORMATION
  Report Type: 
  Country: None (occurrence: None)
  Receive Date: 20080103
  Receipt Date: 20071226
  Transmission Date: 20080703
  Serious: Yes (Other)
  Sender: FDA-Public Use
  Company Number: US-PFIZER INC-2007108273

PATIENT

DRUGS (1)
  1. NEURONTIN [Suspect]
     Indication: POST HERPETIC NEURALGIA

REACTIONS (1)
  - ANGINA PECTORIS [None]
